FAERS Safety Report 4343550-9 (Version None)
Quarter: 2004Q2

REPORT INFORMATION
  Report Type: 
  Country: None (occurrence: None)
  Receive Date: 20040419
  Receipt Date: 20040402
  Transmission Date: 20050107
  Serious: Yes (Other)
  Sender: FDA-Public Use
  Company Number: S04-USA-02060-01

PATIENT
  Age: 63 Year
  Sex: Female

DRUGS (4)
  1. LEVOTHROID [Suspect]
     Indication: HYPOTHYROIDISM
     Dosage: 88 MCG QD PO
     Route: 048
     Dates: start: 20031001
  2. CAPTOPRIL [Concomitant]
  3. ATENOLOL [Concomitant]
  4. DITROPAN [Concomitant]

REACTIONS (9)
  - CONSTIPATION [None]
  - DIABETES MELLITUS NON-INSULIN-DEPENDENT [None]
  - DIZZINESS [None]
  - HAEMORRHAGE [None]
  - HYPERSENSITIVITY [None]
  - SKIN DISORDER [None]
  - TEMPERATURE INTOLERANCE [None]
  - VISUAL DISTURBANCE [None]
  - WEIGHT DECREASED [None]
